FAERS Safety Report 18218743 (Version 2)
Quarter: 2021Q1

REPORT INFORMATION
  Report Type: Report from Study
  Country: US (occurrence: US)
  Receive Date: 20200901
  Receipt Date: 20210324
  Transmission Date: 20210419
  Serious: No
  Sender: FDA-Public Use
  Company Number: US-SA-2020SA234970

PATIENT
  Age: 4 Year
  Sex: Male

DRUGS (2)
  1. LUMIZYME [Suspect]
     Active Substance: ALGLUCOSIDASE ALFA
     Indication: GLYCOGEN STORAGE DISEASE TYPE II
     Dosage: UNK UNK, QOW
     Route: 042
     Dates: start: 20181114
  2. LUMIZYME [Suspect]
     Active Substance: ALGLUCOSIDASE ALFA
     Dosage: 350 MG, QOW
     Route: 042
     Dates: end: 20210224

REACTIONS (3)
  - Blood immunoglobulin G increased [Unknown]
  - Urticaria [Unknown]
  - Neutralising antibodies negative [Unknown]

NARRATIVE: CASE EVENT DATE: 20200813
